FAERS Safety Report 6236050-2 (Version None)
Quarter: 2009Q2

REPORT INFORMATION
  Report Type: 
  Country: None (occurrence: None)
  Receive Date: 20090617
  Receipt Date: 20090617
  Transmission Date: 20091009
  Serious: Yes (Other)
  Sender: FDA-Public Use
  Company Number: None

PATIENT
  Age: 35 Year
  Sex: Male
  Weight: 74.8435 kg

DRUGS (3)
  1. ZICAM MATRIXX [Suspect]
     Indication: HYPERSENSITIVITY
     Dosage: PER RECCOMMENDED PER RECCOMENDED NASAL
     Route: 045
     Dates: start: 20070620, end: 20070630
  2. ZICAM MATRIXX [Suspect]
     Indication: INFLUENZA
     Dosage: PER RECCOMMENDED PER RECCOMENDED NASAL
     Route: 045
     Dates: start: 20070620, end: 20070630
  3. ZICAM MATRIXX [Suspect]
     Indication: NASOPHARYNGITIS
     Dosage: PER RECCOMMENDED PER RECCOMENDED NASAL
     Route: 045
     Dates: start: 20070620, end: 20070630

REACTIONS (1)
  - ANOSMIA [None]
